FAERS Safety Report 7010222-1 (Version None)
Quarter: 2010Q3

REPORT INFORMATION
  Report Type: 
  Country: None (occurrence: None)
  Receive Date: 20100923
  Receipt Date: 20100914
  Transmission Date: 20110219
  Serious: Yes (Hospitalization)
  Sender: FDA-Public Use
  Company Number: GXBR2010US01421

PATIENT
  Sex: Male
  Weight: 107 kg

DRUGS (12)
  1. TACROLIMUS (NGX) [Suspect]
     Indication: IMMUNOSUPPRESSANT DRUG THERAPY
     Dosage: 0.5 MG, BID2SDO
     Route: 048
     Dates: start: 20100713
  2. PROGRAF [Suspect]
     Indication: IMMUNOSUPPRESSANT DRUG THERAPY
     Dosage: 1 MG, BID
     Route: 048
     Dates: start: 20081201, end: 20100701
  3. CELLCEPT [Concomitant]
     Dosage: UNK
     Dates: start: 20081201
  4. BACTRIM [Concomitant]
     Dosage: 800/160MG
  5. SYNTHROID [Concomitant]
     Dosage: UNK
  6. PRILOSEC [Concomitant]
     Dosage: UNK
  7. PRAVASTATIN [Concomitant]
     Dosage: UNK
  8. DOXYCYCLINE [Concomitant]
     Dosage: UNK
  9. TOPROL-XL [Concomitant]
     Dosage: UNK
  10. AMLODIPINE [Concomitant]
     Dosage: UNK
  11. DIOVAN [Concomitant]
     Dosage: UNK
  12. FUROSEMIDE [Concomitant]
     Dosage: UNK

REACTIONS (3)
  - ILEOSTOMY [None]
  - POSTOPERATIVE ILEUS [None]
  - RENAL FAILURE ACUTE [None]
